FAERS Safety Report 4907022-2 (Version None)
Quarter: 2006Q1

REPORT INFORMATION
  Report Type: 
  Country: None (occurrence: None)
  Receive Date: 20060206
  Receipt Date: 20060124
  Transmission Date: 20060701
  Serious: Yes (Other)
  Sender: FDA-Public Use
  Company Number: 200610480BWH

PATIENT
  Age: 62 Year
  Sex: Female

DRUGS (8)
  1. PRECOSE [Suspect]
     Indication: DIABETES MELLITUS
     Dosage: SEE IMAGE
     Route: 048
     Dates: start: 20051201
  2. PRECOSE [Suspect]
     Indication: DIABETES MELLITUS
     Dosage: SEE IMAGE
     Route: 048
     Dates: start: 20051201
  3. METFORMIN HCL [Concomitant]
  4. GLYBURIDE [Concomitant]
  5. DHEA [Concomitant]
  6. C-SILVER VITAMIN [Concomitant]
  7. NATURAL VITAMINS [Concomitant]
  8. ZETIA [Concomitant]

REACTIONS (7)
  - ABNORMAL FAECES [None]
  - BLOOD GLUCOSE FLUCTUATION [None]
  - DIARRHOEA [None]
  - EATING DISORDER [None]
  - HAEMATEMESIS [None]
  - RETCHING [None]
  - WEIGHT DECREASED [None]
